FAERS Safety Report 17997352 (Version 1)
Quarter: 2020Q3

REPORT INFORMATION
  Report Type: Report from Study
  Country: KR (occurrence: KR)
  Receive Date: 20200708
  Receipt Date: 20200708
  Transmission Date: 20201103
  Serious: No
  Sender: FDA-Public Use
  Company Number: KR-B.I. PHARMACEUTICALS,INC./RIDGEFIELD-2020-BI-034173

PATIENT
  Age: 39 Year
  Sex: Female
  Weight: 82 kg

DRUGS (4)
  1. JARDIANCE [Suspect]
     Active Substance: EMPAGLIFLOZIN
     Indication: TYPE 2 DIABETES MELLITUS
     Route: 048
     Dates: start: 20171023, end: 20171029
  2. AMARYL M [Concomitant]
     Active Substance: GLIMEPIRIDE\METFORMIN
     Indication: TYPE 2 DIABETES MELLITUS
     Dosage: UNIT DOSE: 1/500MG
     Route: 048
     Dates: start: 20171201
  3. LIVALO [Concomitant]
     Active Substance: PITAVASTATIN CALCIUM
     Indication: DYSLIPIDAEMIA
     Route: 048
     Dates: start: 20171023
  4. JARDIANCE [Suspect]
     Active Substance: EMPAGLIFLOZIN
     Route: 048
     Dates: start: 20171106, end: 20180610

REACTIONS (1)
  - Cervicitis [Recovered/Resolved]

NARRATIVE: CASE EVENT DATE: 20180523
